FAERS Safety Report 23314545 (Version 3)
Quarter: 2024Q1

REPORT INFORMATION
  Report Type: Spontaneous
  Country: US (occurrence: US)
  Receive Date: 20231219
  Receipt Date: 20240105
  Transmission Date: 20240410
  Serious: Yes (Other)
  Sender: FDA-Public Use
  Company Number: US-SANDOZ-SDZ2023US068677

PATIENT
  Age: 38 Year
  Sex: Female
  Weight: 64.3 kg

DRUGS (8)
  1. MYCOPHENOLATE MOFETIL [Suspect]
     Active Substance: MYCOPHENOLATE MOFETIL
     Indication: Renal transplant
     Dosage: 500 MG, BID
     Route: 048
     Dates: start: 20170924, end: 20230918
  2. AMLODIPINE [Concomitant]
     Active Substance: AMLODIPINE BESYLATE
     Indication: Hypertension
     Dosage: 10 MG, QD
     Route: 065
  3. BELATACEPT [Concomitant]
     Active Substance: BELATACEPT
     Indication: Renal transplant
     Dosage: 5 MG/KG, Q4W
     Route: 042
     Dates: start: 202008, end: 20230918
  4. COREG [Concomitant]
     Active Substance: CARVEDILOL
     Indication: Hypertension
     Dosage: 25 MG, BID
     Route: 065
  5. FLEXERIL [Concomitant]
     Active Substance: CYCLOBENZAPRINE HYDROCHLORIDE
     Indication: Muscle relaxant therapy
     Dosage: 10 MG, TID
     Route: 065
  6. OMEPRAZOLE [Concomitant]
     Active Substance: OMEPRAZOLE
     Indication: Gastrooesophageal reflux disease
     Dosage: 40 MG, QD
     Route: 065
  7. PREDNISONE [Concomitant]
     Active Substance: PREDNISONE
     Indication: Renal transplant
     Dosage: 5 MG, QD
     Route: 065
  8. TACROLIMUS [Concomitant]
     Active Substance: TACROLIMUS
     Indication: Immunosuppression
     Dosage: UNK
     Route: 065

REACTIONS (2)
  - Abortion spontaneous [Recovered/Resolved]
  - Maternal exposure during pregnancy [Unknown]

NARRATIVE: CASE EVENT DATE: 20231130
